FAERS Safety Report 14526340 (Version 1)
Quarter: 2018Q1

REPORT INFORMATION
  Report Type: Spontaneous
  Country: US (occurrence: US)
  Receive Date: 20180212
  Receipt Date: 20180212
  Transmission Date: 20180509
  Serious: Yes (Hospitalization)
  Sender: FDA-Public Use
  Company Number: None

PATIENT
  Age: 46 Year
  Sex: Male
  Weight: 80.6 kg

DRUGS (5)
  1. LURASIDONE [Concomitant]
     Active Substance: LURASIDONE
  2. NAPROXEN. [Concomitant]
     Active Substance: NAPROXEN
  3. OXYCODONE [Concomitant]
     Active Substance: OXYCODONE
  4. XANAX [Concomitant]
     Active Substance: ALPRAZOLAM
  5. ZEPATIER [Suspect]
     Active Substance: ELBASVIR\GRAZOPREVIR
     Indication: HEPATITIS C
     Dosage: DOSE - 50-100MG QD ORAL?DATES OF USE - 5/27/17 - 7/21/17?RESTART: 8/14/17
     Route: 048
     Dates: start: 20170527, end: 20170721

REACTIONS (1)
  - Adjustment disorder [None]

NARRATIVE: CASE EVENT DATE: 20170814
